FAERS Safety Report 9988010 (Version 2)
Quarter: 2014Q1

REPORT INFORMATION
  Report Type: Spontaneous
  Country: NZ (occurrence: NZ)
  Receive Date: 20140307
  Receipt Date: 20140307
  Transmission Date: 20141002
  Serious: Yes (Other)
  Sender: FDA-Public Use
  Company Number: NZ-ABBVIE-13P-118-1161339-00

PATIENT
  Age: 46 Year
  Sex: Female

DRUGS (3)
  1. HUMIRA [Suspect]
     Indication: RHEUMATOID ARTHRITIS
  2. HUMIRA [Suspect]
  3. METHOTREXATE [Concomitant]
     Indication: PRODUCT USED FOR UNKNOWN INDICATION

REACTIONS (7)
  - Hernia repair [Unknown]
  - Intestinal operation [Unknown]
  - Drug dose omission [Unknown]
  - Incisional hernia [Unknown]
  - Impaired healing [Unknown]
  - Feeling abnormal [Unknown]
  - Drug effect delayed [Unknown]
